FAERS Safety Report 5270956-6 (Version None)
Quarter: 2007Q1

REPORT INFORMATION
  Report Type: 
  Country: None (occurrence: None)
  Receive Date: 20070321
  Receipt Date: 20070308
  Transmission Date: 20070707
  Serious: Yes (Other)
  Sender: FDA-Public Use
  Company Number: PHMT2007CA00625

PATIENT
  Age: 42 Year
  Sex: Male

DRUGS (1)
  1. FAMVIR [Suspect]
     Indication: HERPES ZOSTER
     Dosage: 500 MG, BID
     Route: 048
     Dates: start: 20070126, end: 20070131

REACTIONS (2)
  - DEAFNESS [None]
  - TINNITUS [None]
